FAERS Safety Report 23981058 (Version 2)
Quarter: 2025Q2

REPORT INFORMATION
  Report Type: Spontaneous
  Country: US (occurrence: US)
  Receive Date: 20240617
  Receipt Date: 20250419
  Transmission Date: 20250717
  Serious: Yes (Hospitalization)
  Sender: AUROBINDO
  Company Number: US-AUROBINDO-AUR-APL-2024-028982

PATIENT
  Sex: Male

DRUGS (7)
  1. RUFINAMIDE [Interacting]
     Active Substance: RUFINAMIDE
     Indication: Lennox-Gastaut syndrome
     Route: 065
  2. TOPIRAMATE [Interacting]
     Active Substance: TOPIRAMATE
     Indication: Lennox-Gastaut syndrome
     Route: 065
  3. LACOSAMIDE [Interacting]
     Active Substance: LACOSAMIDE
     Indication: Lennox-Gastaut syndrome
     Route: 065
  4. ZONISAMIDE [Interacting]
     Active Substance: ZONISAMIDE
     Indication: Lennox-Gastaut syndrome
     Route: 065
  5. POTASSIUM CITRATE [Suspect]
     Active Substance: POTASSIUM CITRATE
     Indication: Hypocitraturia
     Dosage: 10 MILLIEQUIVALENT, TWO TIMES A DAY
     Route: 065
  6. POTASSIUM CITRATE [Suspect]
     Active Substance: POTASSIUM CITRATE
     Dosage: 20 MILLIEQUIVALENT, TWO TIMES A DAY
     Route: 065
  7. FELBAMATE [Suspect]
     Active Substance: FELBAMATE
     Indication: Lennox-Gastaut syndrome
     Dosage: 1500 MILLIGRAM, 3 TIMES A DAY (62 MG/KG/DAY))
     Route: 065

REACTIONS (2)
  - Calculus urinary [Unknown]
  - Drug interaction [Unknown]
